FAERS Safety Report 6232934-X (Version None)
Quarter: 2009Q2

REPORT INFORMATION
  Report Type: 
  Country: None (occurrence: None)
  Receive Date: 20090612
  Receipt Date: 20090612
  Transmission Date: 20091009
  Serious: Yes (Other)
  Sender: FDA-Public Use
  Company Number: None

PATIENT
  Age: 43 Year
  Sex: Male
  Weight: 61.2356 kg

DRUGS (1)
  1. LEVAQUIN [Suspect]
     Indication: RESPIRATORY TRACT INFECTION
     Dosage: 750 MG SID PO  (ONE DOSE)
     Route: 048
     Dates: start: 20090610, end: 20090610

REACTIONS (3)
  - PARAESTHESIA ORAL [None]
  - PRURITUS GENERALISED [None]
  - URTICARIA [None]
